FAERS Safety Report 16504376 (Version 1)
Quarter: 2019Q3

REPORT INFORMATION
  Report Type: Spontaneous
  Country: US (occurrence: US)
  Receive Date: 20190701
  Receipt Date: 20190701
  Transmission Date: 20191004
  Serious: No
  Sender: FDA-Public Use
  Company Number: US-PFIZER INC-2019273544

PATIENT
  Age: 72 Year
  Sex: Female
  Weight: 86.62 kg

DRUGS (2)
  1. GABAPENTIN. [Suspect]
     Active Substance: GABAPENTIN
     Dosage: 900 MG, 1X/DAY [900 MG AT NIGHT ]
  2. GABAPENTIN. [Suspect]
     Active Substance: GABAPENTIN
     Indication: SCOLIOSIS
     Dosage: 300 MG, 3X/DAY

REACTIONS (3)
  - Feeling abnormal [Unknown]
  - Off label use [Unknown]
  - Product use in unapproved indication [Unknown]
